FAERS Safety Report 6314177-4 (Version None)
Quarter: 2009Q3

REPORT INFORMATION
  Report Type: 
  Country: None (occurrence: None)
  Receive Date: 20090818
  Receipt Date: 20090813
  Transmission Date: 20100115
  Serious: Yes (Death, Hospitalization)
  Sender: FDA-Public Use
  Company Number: PHHY2009BR24772

PATIENT
  Age: 83 Year
  Sex: Female

DRUGS (1)
  1. FORASEQ [Suspect]
     Indication: FATIGUE
     Dosage: 1 DF, BID

REACTIONS (2)
  - INFLUENZA [None]
  - RESPIRATORY ARREST [None]
